FAERS Safety Report 12408415 (Version 2)
Quarter: 2016Q3

REPORT INFORMATION
  Report Type: Spontaneous
  Country: DK (occurrence: DK)
  Receive Date: 20160526
  Receipt Date: 20160902
  Transmission Date: 20161109
  Serious: Yes (Death, Hospitalization, Other)
  Sender: FDA-Public Use
  Company Number: DK-BAXTER-2016BAX026693

PATIENT
  Age: 69 Year
  Sex: Male

DRUGS (30)
  1. SENDOXAN [Suspect]
     Active Substance: CYCLOPHOSPHAMIDE
     Dosage: R-CHOP CHEMOTHERAPY
     Route: 042
     Dates: start: 20121102
  2. ONCOVIN [Suspect]
     Active Substance: VINCRISTINE SULFATE
     Indication: B-CELL LYMPHOMA
     Dosage: R-CHOP CHEMOTHERAPY
     Route: 042
     Dates: start: 20121012
  3. MABTHERA [Suspect]
     Active Substance: RITUXIMAB
     Route: 042
     Dates: start: 20121123
  4. SIMVASTATIN. [Concomitant]
     Active Substance: SIMVASTATIN
     Indication: PRODUCT USED FOR UNKNOWN INDICATION
     Route: 065
  5. GLIMEPIRIDE. [Concomitant]
     Active Substance: GLIMEPIRIDE
     Indication: PRODUCT USED FOR UNKNOWN INDICATION
     Route: 065
  6. MABTHERA [Suspect]
     Active Substance: RITUXIMAB
     Route: 042
     Dates: start: 20121214
  7. PINEX [Concomitant]
     Active Substance: ACETAMINOPHEN
     Indication: PRODUCT USED FOR UNKNOWN INDICATION
     Dosage: 500 MGX6
     Route: 065
  8. HJERTEMAGNYL [Concomitant]
     Active Substance: ASPIRIN\MAGNESIUM OXIDE
     Indication: PRODUCT USED FOR UNKNOWN INDICATION
     Route: 065
  9. SENDOXAN [Suspect]
     Active Substance: CYCLOPHOSPHAMIDE
     Indication: B-CELL LYMPHOMA
     Dosage: R-CHOP CHEMOTHERAPY
     Route: 042
     Dates: start: 20121012
  10. ADRIAMYCIN [Suspect]
     Active Substance: DOXORUBICIN HYDROCHLORIDE
     Dosage: R-CHOP CHEMOTHERAPY
     Route: 042
     Dates: start: 20121123
  11. ONCOVIN [Suspect]
     Active Substance: VINCRISTINE SULFATE
     Dosage: R-CHOP CHEMOTHERAPY
     Route: 042
     Dates: start: 20130104, end: 20130125
  12. VICTOZA [Concomitant]
     Active Substance: LIRAGLUTIDE
     Indication: PRODUCT USED FOR UNKNOWN INDICATION
     Route: 065
  13. CODEINE [Concomitant]
     Active Substance: CODEINE
     Indication: PRODUCT USED FOR UNKNOWN INDICATION
     Route: 065
  14. ONCOVIN [Suspect]
     Active Substance: VINCRISTINE SULFATE
     Dosage: R-CHOP CHEMOTHERAPY
     Route: 042
     Dates: start: 20121123
  15. ONCOVIN [Suspect]
     Active Substance: VINCRISTINE SULFATE
     Dosage: R-CHOP CHEMOTHERAPY
     Route: 042
     Dates: start: 20121214
  16. ACICLOVIR [Concomitant]
     Active Substance: ACYCLOVIR
     Indication: PRODUCT USED FOR UNKNOWN INDICATION
     Route: 065
  17. SENDOXAN [Suspect]
     Active Substance: CYCLOPHOSPHAMIDE
     Dosage: R-CHOP CHEMOTHERAPY
     Route: 042
     Dates: start: 20121123
  18. ADRIAMYCIN [Suspect]
     Active Substance: DOXORUBICIN HYDROCHLORIDE
     Indication: B-CELL LYMPHOMA
     Dosage: R-CHOP CHEMOTHERAPY
     Route: 042
     Dates: start: 20121012
  19. ADRIAMYCIN [Suspect]
     Active Substance: DOXORUBICIN HYDROCHLORIDE
     Dosage: R-CHOP CHEMOTHERAPY
     Route: 042
     Dates: start: 20121214
  20. ONCOVIN [Suspect]
     Active Substance: VINCRISTINE SULFATE
     Dosage: R-CHOP CHEMOTHERAPY
     Route: 042
     Dates: start: 20121102
  21. MABTHERA [Suspect]
     Active Substance: RITUXIMAB
     Route: 042
     Dates: start: 20130104, end: 20130429
  22. IBUPROFEN. [Concomitant]
     Active Substance: IBUPROFEN
     Indication: PRODUCT USED FOR UNKNOWN INDICATION
     Route: 065
  23. METOPROLOL SUCCINATE. [Concomitant]
     Active Substance: METOPROLOL SUCCINATE
     Indication: PRODUCT USED FOR UNKNOWN INDICATION
     Route: 065
  24. SENDOXAN [Suspect]
     Active Substance: CYCLOPHOSPHAMIDE
     Dosage: R-CHOP CHEMOTHERAPY
     Route: 042
     Dates: start: 20130104, end: 20130125
  25. ADRIAMYCIN [Suspect]
     Active Substance: DOXORUBICIN HYDROCHLORIDE
     Dosage: R-CHOP CHEMOTHERAPY
     Route: 042
     Dates: start: 20130104, end: 20130125
  26. MABTHERA [Suspect]
     Active Substance: RITUXIMAB
     Indication: B-CELL LYMPHOMA
     Route: 042
     Dates: start: 20121012
  27. SENDOXAN [Suspect]
     Active Substance: CYCLOPHOSPHAMIDE
     Dosage: R-CHOP CHEMOTHERAPY
     Route: 042
     Dates: start: 20121214
  28. ADRIAMYCIN [Suspect]
     Active Substance: DOXORUBICIN HYDROCHLORIDE
     Dosage: R-CHOP CHEMOTHERAPY
     Route: 042
     Dates: start: 20121102
  29. MABTHERA [Suspect]
     Active Substance: RITUXIMAB
     Route: 042
     Dates: start: 20121102
  30. DICLON [Concomitant]
     Active Substance: DICLOFENAC SODIUM
     Indication: PRODUCT USED FOR UNKNOWN INDICATION
     Route: 065

REACTIONS (8)
  - Ascites [Unknown]
  - Malignant peritoneal neoplasm [Unknown]
  - Cardiomegaly [Fatal]
  - Pleural effusion [Unknown]
  - Cardiac failure [Fatal]
  - Asthenia [Not Recovered/Not Resolved]
  - Hallucination [Unknown]
  - Pneumonia [Recovered/Resolved]

NARRATIVE: CASE EVENT DATE: 20130203
